FAERS Safety Report 20733329 (Version 2)
Quarter: 2022Q2

REPORT INFORMATION
  Report Type: Report from Study
  Country: NL (occurrence: NL)
  Receive Date: 20220421
  Receipt Date: 20220510
  Transmission Date: 20220721
  Serious: Yes (Death)
  Sender: FDA-Public Use
  Company Number: NL-BAYER-2022A056964

PATIENT
  Age: 77 Year
  Sex: Female

DRUGS (12)
  1. RIVAROXABAN [Suspect]
     Active Substance: RIVAROXABAN
     Indication: Peripheral arterial occlusive disease
     Dosage: 2.5 MG, BID
     Route: 048
     Dates: start: 20200819
  2. RIVAROXABAN [Suspect]
     Active Substance: RIVAROXABAN
     Indication: Vascular disorder prophylaxis
     Route: 048
  3. ASPIRIN [Suspect]
     Active Substance: ASPIRIN
     Indication: Vascular disorder prophylaxis
     Dosage: 100 MG
     Route: 048
     Dates: start: 20200722
  4. ASPIRIN [Suspect]
     Active Substance: ASPIRIN
     Indication: Peripheral arterial occlusive disease
  5. BISOPROLOL [Concomitant]
     Active Substance: BISOPROLOL
  6. PANTOPRAZOLE [Concomitant]
     Active Substance: PANTOPRAZOLE
  7. ISOSORBIDE MONONITRATE [Concomitant]
     Active Substance: ISOSORBIDE MONONITRATE
  8. ALBUTEROL [Concomitant]
     Active Substance: ALBUTEROL
  9. BECLOMETHASONE [Concomitant]
     Active Substance: BECLOMETHASONE
  10. FORMOTEROL [Concomitant]
     Active Substance: FORMOTEROL
  11. TIOTROPIUM [Concomitant]
     Active Substance: TIOTROPIUM
  12. ROSUVASTATIN [Concomitant]
     Active Substance: ROSUVASTATIN

REACTIONS (1)
  - Death [Fatal]

NARRATIVE: CASE EVENT DATE: 20200830
